FAERS Safety Report 6054343-9 (Version None)
Quarter: 2009Q1

REPORT INFORMATION
  Report Type: 
  Country: None (occurrence: None)
  Receive Date: 20090127
  Receipt Date: 20090115
  Transmission Date: 20090719
  Serious: Yes (Hospitalization)
  Sender: FDA-Public Use
  Company Number: FR-WYE-H07734009

PATIENT
  Sex: Female

DRUGS (3)
  1. INIPOMP [Suspect]
     Indication: PROPHYLAXIS AGAINST GASTROINTESTINAL ULCER
     Route: 048
     Dates: start: 20080917
  2. CORTANCYL [Suspect]
     Indication: SARCOIDOSIS
     Route: 048
     Dates: start: 20080917, end: 20081103
  3. CORTANCYL [Suspect]
     Dosage: DOSE WAS REDUCED
     Route: 048
     Dates: start: 20081104

REACTIONS (4)
  - DIABETES MELLITUS [None]
  - GENERAL PHYSICAL HEALTH DETERIORATION [None]
  - HEPATOMEGALY [None]
  - LYMPHOPENIA [None]
